FAERS Safety Report 6972922-9 (Version None)
Quarter: 2010Q3

REPORT INFORMATION
  Report Type: 
  Country: None (occurrence: None)
  Receive Date: 20100907
  Receipt Date: 20100831
  Transmission Date: 20110219
  Serious: Yes (Death)
  Sender: FDA-Public Use
  Company Number: 2010080071

PATIENT
  Age: 34 Year
  Sex: Female

DRUGS (9)
  1. ONSOLIS [Suspect]
     Indication: CANCER PAIN
     Dosage: TITRATE UP TO 4 (200MCG) FILMS/DOSE (UP TO 4 TIMES DAILY), BU
     Route: 002
     Dates: start: 20100825
  2. LEVOTHYROXINE [Concomitant]
  3. ROBAXIN [Concomitant]
  4. NEXIUM [Concomitant]
  5. CLINDAMYCIN HCL [Concomitant]
  6. VICODIN [Concomitant]
  7. DURAGESIC-100 [Concomitant]
  8. PERCOCET [Concomitant]
  9. DILAUDID [Concomitant]

REACTIONS (3)
  - BREAST CANCER METASTATIC [None]
  - MALIGNANT NEOPLASM PROGRESSION [None]
  - NASOPHARYNGEAL CANCER [None]
